FAERS Safety Report 24608690 (Version 2)
Quarter: 2024Q4

REPORT INFORMATION
  Report Type: Spontaneous
  Country: US (occurrence: US)
  Receive Date: 20241112
  Receipt Date: 20241202
  Transmission Date: 20250114
  Serious: No
  Sender: BAYER HEALTHCARE PHARMACEUTICALS INC.
  Company Number: US-BAYER-2024A157686

PATIENT
  Age: 50 Year
  Sex: Female

DRUGS (4)
  1. CLIMARA PRO [Suspect]
     Active Substance: ESTRADIOL\LEVONORGESTREL
     Indication: Menopause
     Dosage: 0.045 PER DAY
     Dates: start: 20241001
  2. TESTOSTERONE [Concomitant]
     Active Substance: TESTOSTERONE
     Indication: Loss of libido
     Dosage: UNK
     Dates: start: 20241001
  3. TESTOSTERONE [Concomitant]
     Active Substance: TESTOSTERONE
     Indication: Anxiety
  4. LAMOTRIGINE [Concomitant]
     Active Substance: LAMOTRIGINE
     Indication: Mood swings
     Dosage: UNK
     Dates: start: 20240301

REACTIONS (2)
  - Back pain [Not Recovered/Not Resolved]
  - Device adhesion issue [None]

NARRATIVE: CASE EVENT DATE: 20241005
